FAERS Safety Report 6964636-6 (Version None)
Quarter: 2010Q3

REPORT INFORMATION
  Report Type: 
  Country: None (occurrence: None)
  Receive Date: 20100903
  Receipt Date: 20100826
  Transmission Date: 20110219
  Serious: Yes (Other)
  Sender: FDA-Public Use
  Company Number: US-ASTRAZENECA-2009UW01233

PATIENT
  Age: 18049 Day
  Sex: Female

DRUGS (3)
  1. SEROQUEL [Suspect]
     Indication: DEPRESSION
     Route: 048
     Dates: start: 20040801, end: 20060301
  2. ASPIRIN [Concomitant]
     Dosage: DAILY
     Dates: start: 20060724
  3. LISINOPRIL [Concomitant]
     Dates: start: 20070828

REACTIONS (3)
  - DIABETIC NEPHROPATHY [None]
  - GLUCOSE TOLERANCE IMPAIRED [None]
  - TYPE 2 DIABETES MELLITUS [None]
